FAERS Safety Report 18402954 (Version 1)
Quarter: 2020Q4

REPORT INFORMATION
  Report Type: Spontaneous
  Country: SI (occurrence: SI)
  Receive Date: 20201019
  Receipt Date: 20201019
  Transmission Date: 20210114
  Serious: Yes (Life-Threatening, Other)
  Sender: FDA-Public Use
  Company Number: SI-US-PROVELL PHARMACEUTICALS LLC-9192940

PATIENT

DRUGS (1)
  1. EUTHYROX [Suspect]
     Active Substance: LEVOTHYROXINE SODIUM
     Indication: THYROID DISORDER

REACTIONS (4)
  - Blood homocysteine increased [Recovering/Resolving]
  - Basedow^s disease [Unknown]
  - Drug ineffective [Unknown]
  - Vitamin B12 deficiency [Unknown]
